FAERS Safety Report 5516895-4 (Version None)
Quarter: 2007Q4

REPORT INFORMATION
  Report Type: 
  Country: None (occurrence: None)
  Receive Date: 20071114
  Receipt Date: 20071105
  Transmission Date: 20080405
  Serious: Yes (Congenital Anomaly, Other)
  Sender: FDA-Public Use
  Company Number: JP-ASTRAZENECA-2007AP06553

PATIENT
  Age: 1 Day
  Sex: Male
  Weight: 3.6 kg

DRUGS (8)
  1. SEROQUEL [Suspect]
     Route: 064
     Dates: end: 20071004
  2. MYSLEE [Suspect]
     Route: 064
     Dates: end: 20071004
  3. TOLEDOMIN [Suspect]
     Route: 064
     Dates: end: 20071004
  4. LEXOTAN [Suspect]
     Route: 064
     Dates: end: 20071004
  5. HALCION [Suspect]
     Route: 064
     Dates: end: 20071004
  6. FLUNITRAZEPAM [Suspect]
     Dates: end: 20071004
  7. CONTMIN/CHLORPROMAZINE [Suspect]
     Route: 064
     Dates: end: 20071004
  8. EURODIN [Suspect]
     Route: 064
     Dates: end: 20071004

REACTIONS (1)
  - NEONATAL RESPIRATORY DEPRESSION [None]
